FAERS Safety Report 5031679-1 (Version None)
Quarter: 2006Q2

REPORT INFORMATION
  Report Type: 
  Country: None (occurrence: None)
  Receive Date: 20060616
  Receipt Date: 20060609
  Transmission Date: 20061013
  Serious: Yes (Hospitalization, Other)
  Sender: FDA-Public Use
  Company Number: US-2006-004590

PATIENT
  Age: 35 Year
  Sex: Female
  Weight: 45.8 kg

DRUGS (5)
  1. BETASERON [Suspect]
     Indication: MULTIPLE SCLEROSIS
     Dosage: SEE IMAGE
     Route: 058
     Dates: end: 20060303
  2. BETASERON [Suspect]
     Indication: MULTIPLE SCLEROSIS
     Dosage: SEE IMAGE
     Route: 058
     Dates: start: 20051213
  3. ZELNORM  /USA/ (TEGASEROD) [Concomitant]
  4. REGLAN   /USA/ (METOCLOPRAMIDE HYDROCHLORIDE) [Concomitant]
  5. XANAX [Concomitant]

REACTIONS (7)
  - CHOLECYSTECTOMY [None]
  - COUGH [None]
  - DYSPNOEA [None]
  - NAUSEA [None]
  - POST PROCEDURAL VOMITING [None]
  - VOMITING [None]
  - WEIGHT DECREASED [None]
